FAERS Safety Report 8457492-0 (Version None)
Quarter: 2012Q2

REPORT INFORMATION
  Report Type: 
  Country: None (occurrence: None)
  Receive Date: 20120622
  Receipt Date: 20120611
  Transmission Date: 20120825
  Serious: Yes (Hospitalization)
  Sender: FDA-Public Use
  Company Number: US-PAR PHARMACEUTICAL, INC-2012SCPR004455

PATIENT

DRUGS (7)
  1. CIPROFLOXACIN EXTENDED RELEASE [Suspect]
     Indication: PRODUCT USED FOR UNKNOWN INDICATION
     Dosage: UNK, UNKNOWN
     Route: 065
  2. HYDROMORPHONE HCL [Concomitant]
     Indication: BACK PAIN
     Dosage: UNK, UNKNOWN
     Route: 065
  3. METOCLOPRAMIDE [Concomitant]
     Indication: PRODUCT USED FOR UNKNOWN INDICATION
     Dosage: UNK, UNKNOWN
     Route: 065
  4. VENLAFAXINE HCL [Interacting]
     Dosage: 100 MG, BID
     Route: 065
  5. OXYCODONE HCL [Concomitant]
     Indication: BACK PAIN
     Dosage: UNK, UNKNOWN
     Route: 065
  6. VENLAFAXINE HCL [Interacting]
     Indication: MAJOR DEPRESSION
     Dosage: 75 MG, BID
     Route: 065
  7. METHADONE HCL [Interacting]
     Indication: BACK PAIN
     Dosage: UNK, UNKNOWN
     Route: 065

REACTIONS (2)
  - SEROTONIN SYNDROME [None]
  - DRUG INTERACTION [None]
